FAERS Safety Report 4591216-2 (Version None)
Quarter: 2005Q1

REPORT INFORMATION
  Report Type: 
  Country: None (occurrence: None)
  Receive Date: 20050224
  Receipt Date: 20050224
  Transmission Date: 20050727
  Serious: Yes (Other)
  Sender: FDA-Public Use
  Company Number: None

PATIENT
  Sex: Male

DRUGS (1)
  1. PEMOLINE [Suspect]
     Indication: NARCOLEPSY
     Dosage: ONE PO Q AM
     Route: 048

REACTIONS (2)
  - FEELING ABNORMAL [None]
  - FEELING JITTERY [None]
